FAERS Safety Report 12592495 (Version 1)
Quarter: 2016Q3

REPORT INFORMATION
  Report Type: Spontaneous
  Country: DE (occurrence: DE)
  Receive Date: 20160726
  Receipt Date: 20160726
  Transmission Date: 20161109
  Serious: Yes (Hospitalization)
  Sender: FDA-Public Use
  Company Number: DE-ACTAVIS-2016-16395

PATIENT
  Sex: Male

DRUGS (3)
  1. ERGENYL                            /00228502/ [Concomitant]
     Active Substance: VALPROATE SODIUM
     Indication: SEIZURE
     Dosage: 15 MG, DAILY
     Route: 048
  2. PANTOPRAZOL ACTAVIS [Suspect]
     Active Substance: PANTOPRAZOLE SODIUM
     Indication: GASTROOESOPHAGEAL REFLUX DISEASE
     Dosage: 40 MG, BID
     Route: 048
     Dates: start: 2012
  3. ERGENYL                            /00228502/ [Concomitant]
     Active Substance: VALPROATE SODIUM
     Indication: MANIA

REACTIONS (1)
  - Myalgia [Not Recovered/Not Resolved]

NARRATIVE: CASE EVENT DATE: 2013
